FAERS Safety Report 14103881 (Version 1)
Quarter: 2017Q4

REPORT INFORMATION
  Report Type: Spontaneous
  Country: US (occurrence: US)
  Receive Date: 20171018
  Receipt Date: 20171018
  Transmission Date: 20180321
  Serious: Yes (Hospitalization, Other)
  Sender: FDA-Public Use
  Company Number: US-ASTRAZENECA-2017SF04080

PATIENT
  Age: 996 Month
  Sex: Female
  Weight: 72.6 kg

DRUGS (6)
  1. OMEPRAZOLE. [Suspect]
     Active Substance: OMEPRAZOLE
     Indication: GASTROOESOPHAGEAL REFLUX DISEASE
     Route: 048
     Dates: end: 20170823
  2. ROSUVASTATIN CALCIUM. [Suspect]
     Active Substance: ROSUVASTATIN CALCIUM
     Indication: BLOOD CHOLESTEROL ABNORMAL
     Route: 048
     Dates: start: 20170928
  3. ROSUVASTATIN CALCIUM. [Suspect]
     Active Substance: ROSUVASTATIN CALCIUM
     Indication: BLOOD CHOLESTEROL ABNORMAL
     Dosage: INCREASED HER ROSUVASTATIN DOSE BACK TO 10MG
     Route: 048
     Dates: start: 201709
  4. ROSUVASTATIN CALCIUM. [Suspect]
     Active Substance: ROSUVASTATIN CALCIUM
     Indication: BLOOD CHOLESTEROL ABNORMAL
     Route: 048
     Dates: start: 201603, end: 20170914
  5. ROSUVASTATIN CALCIUM. [Suspect]
     Active Substance: ROSUVASTATIN CALCIUM
     Indication: BLOOD CHOLESTEROL ABNORMAL
     Dosage: REDUCE DOSE BY SPLITTING THE TABS TO 5MG FOR 3 DAYS
     Route: 048
     Dates: start: 201709
  6. NORVASC [Concomitant]
     Active Substance: AMLODIPINE BESYLATE

REACTIONS (11)
  - Dizziness exertional [Unknown]
  - Blood pressure fluctuation [Recovered/Resolved]
  - Pyrexia [Recovered/Resolved]
  - Intentional product misuse [Unknown]
  - Gait disturbance [Unknown]
  - Confusional state [Unknown]
  - Renal injury [Unknown]
  - Chest pain [Unknown]
  - Muscular weakness [Unknown]
  - Blood pressure decreased [Recovered/Resolved]
  - Blood cholesterol abnormal [Unknown]

NARRATIVE: CASE EVENT DATE: 201603
